FAERS Safety Report 10785672 (Version 1)
Quarter: 2015Q1

REPORT INFORMATION
  Report Type: Spontaneous
  Country: US (occurrence: None)
  Receive Date: 20150210
  Receipt Date: 20150210
  Transmission Date: 20150721
  Serious: Yes (Hospitalization)
  Sender: FDA-Public Use
  Company Number: None

PATIENT
  Age: 64 Year
  Sex: Female
  Weight: 36.5 kg

DRUGS (17)
  1. PEPTO-BISMOL [Concomitant]
     Active Substance: BISMUTH SUBSALICYLATE\CALCIUM CARBONATE
  2. CYANOCOBALAMIN. [Concomitant]
     Active Substance: CYANOCOBALAMIN
  3. EVEROLIMUS [Concomitant]
     Active Substance: EVEROLIMUS
  4. THIAMINE [Concomitant]
     Active Substance: THIAMINE
  5. ERGOCALCIFEROL. [Concomitant]
     Active Substance: ERGOCALCIFEROL
  6. PROCRIT [Concomitant]
     Active Substance: ERYTHROPOIETIN
  7. TACROLIMUS. [Concomitant]
     Active Substance: TACROLIMUS
  8. LORTRESS [Concomitant]
  9. CILOSTAZOL. [Concomitant]
     Active Substance: CILOSTAZOL
  10. OLYSIO [Suspect]
     Active Substance: SIMEPREVIR
     Indication: HEPATITIS C VIRUS TEST POSITIVE
     Route: 048
     Dates: start: 20141110
  11. LABETALOL [Concomitant]
     Active Substance: LABETALOL\LABETALOL HYDROCHLORIDE
  12. VITAMIN B12 [Concomitant]
     Active Substance: CYANOCOBALAMIN
  13. MAGNESIUM OXIDE. [Concomitant]
     Active Substance: MAGNESIUM OXIDE
  14. CALCIUM CARBONATE. [Concomitant]
     Active Substance: CALCIUM CARBONATE
  15. DOCUSATE-SENNA [Concomitant]
  16. CIPRO [Concomitant]
     Active Substance: CIPROFLOXACIN HYDROCHLORIDE
  17. SOVALDI [Suspect]
     Active Substance: SOFOSBUVIR
     Indication: HEPATITIS C VIRUS TEST POSITIVE
     Route: 048
     Dates: start: 20150201

REACTIONS (4)
  - Haemodialysis [None]
  - Renal failure [None]
  - Abdominal pain [None]
  - Discomfort [None]

NARRATIVE: CASE EVENT DATE: 20150119
